FAERS Safety Report 19018758 (Version 1)
Quarter: 2021Q1

REPORT INFORMATION
  Report Type: Report from Study
  Country: GB (occurrence: GB)
  Receive Date: 20210317
  Receipt Date: 20210317
  Transmission Date: 20210420
  Serious: Yes (Other)
  Sender: FDA-Public Use
  Company Number: NVSC2021GB053362

PATIENT
  Age: 51 Year
  Sex: Female

DRUGS (2)
  1. HYRIMOZ [Suspect]
     Active Substance: ADALIMUMAB-ADAZ
     Indication: PSORIASIS
     Dosage: 1 DF, Q2W
     Route: 058
     Dates: start: 20190909
  2. HYRIMOZ [Suspect]
     Active Substance: ADALIMUMAB-ADAZ
     Dosage: UNK (JUST INJECTED 2 DAYS AGO)
     Route: 065

REACTIONS (15)
  - Paraesthesia [Unknown]
  - COVID-19 [Recovered/Resolved]
  - Poor quality sleep [Not Recovered/Not Resolved]
  - Stress [Not Recovered/Not Resolved]
  - Pain in extremity [Not Recovered/Not Resolved]
  - Fatigue [Unknown]
  - Limb discomfort [Recovered/Resolved]
  - Feeling abnormal [Not Recovered/Not Resolved]
  - Therapeutic product effect decreased [Unknown]
  - Insomnia [Unknown]
  - Arthritis [Unknown]
  - Pain [Not Recovered/Not Resolved]
  - Burning sensation [Not Recovered/Not Resolved]
  - Crohn^s disease [Unknown]
  - Psoriasis [Not Recovered/Not Resolved]

NARRATIVE: CASE EVENT DATE: 202001
